FAERS Safety Report 16536703 (Version 2)
Quarter: 2019Q4

REPORT INFORMATION
  Report Type: Spontaneous
  Country: CA (occurrence: CA)
  Receive Date: 20190706
  Receipt Date: 20191113
  Transmission Date: 20200122
  Serious: Yes (Other)
  Sender: FDA-Public Use
  Company Number: CA-TEVA-2019-CA-1071499

PATIENT
  Sex: Female

DRUGS (1)
  1. OMEPRAZOLE. [Suspect]
     Active Substance: OMEPRAZOLE
     Indication: PRODUCT USED FOR UNKNOWN INDICATION
     Route: 065

REACTIONS (6)
  - Therapeutic product effect incomplete [Unknown]
  - Vision blurred [Unknown]
  - Product substitution issue [Unknown]
  - Oropharyngeal pain [Unknown]
  - Deafness [Unknown]
  - Influenza [Unknown]
